FAERS Safety Report 21178023 (Version 6)
Quarter: 2023Q2

REPORT INFORMATION
  Report Type: Spontaneous
  Country: US (occurrence: US)
  Receive Date: 20220805
  Receipt Date: 20230413
  Transmission Date: 20230722
  Serious: Yes (Death, Life-Threatening, Hospitalization, Other)
  Sender: FDA-Public Use
  Company Number: US-INCYTE CORPORATION-2022IN007527

PATIENT

DRUGS (13)
  1. JAKAFI [Suspect]
     Active Substance: RUXOLITINIB
     Indication: Myelofibrosis
     Dosage: 20 MILLIGRAM, BID
     Route: 048
     Dates: start: 20220628, end: 20220712
  2. JAKAFI [Suspect]
     Active Substance: RUXOLITINIB
     Dosage: 10 MILLIGRAM, BID
     Route: 048
     Dates: start: 20220713, end: 20220715
  3. NAVITOCLAX [Suspect]
     Active Substance: NAVITOCLAX
     Indication: Myelofibrosis
     Dosage: 200 MILLIGRAM, QD
     Route: 048
     Dates: start: 20220628, end: 20220711
  4. NAVITOCLAX [Suspect]
     Active Substance: NAVITOCLAX
     Dosage: 150 MILLIGRAM, QD
     Route: 048
     Dates: start: 20220712, end: 20220714
  5. ALLOPURINOL [Concomitant]
     Active Substance: ALLOPURINOL
     Indication: Prophylaxis
     Dosage: 300 MILLIGRAM, QD
     Route: 048
     Dates: start: 20190430
  6. ASPIRIN [Concomitant]
     Active Substance: ASPIRIN
     Indication: Ischaemic heart disease prophylaxis
     Dosage: 81 MILLIGRAM, QD
     Route: 048
     Dates: start: 20220517
  7. ASPIRIN [Concomitant]
     Active Substance: ASPIRIN
     Indication: Cerebrovascular accident prophylaxis
  8. FINASTERIDE [Concomitant]
     Active Substance: FINASTERIDE
     Indication: Benign prostatic hyperplasia
     Dosage: 5 MILLIGRAM, QD
     Route: 048
     Dates: start: 20170710
  9. MAGNESIUM [Concomitant]
     Active Substance: MAGNESIUM
     Indication: Supplementation therapy
     Dosage: 400 MILLIGRAM, QD
     Route: 048
     Dates: start: 20210601
  10. MAGNESIUM [Concomitant]
     Active Substance: MAGNESIUM
     Dosage: 400 MILLIGRAM, QD
     Route: 048
     Dates: start: 20210610
  11. SOTALOL [Concomitant]
     Active Substance: SOTALOL
     Indication: Atrial fibrillation
     Dosage: 160 MILLIGRAM, QD
     Route: 048
     Dates: start: 20210601
  12. VITAMIN C [Concomitant]
     Active Substance: ASCORBIC ACID
     Indication: Supplementation therapy
     Dosage: 500 MILLIGRAM, QD
     Route: 048
     Dates: start: 20170710
  13. ARANESP [Concomitant]
     Active Substance: DARBEPOETIN ALFA
     Indication: Anaemia
     Dosage: 100 MICROGRAM, 1 IN 2 WK
     Route: 058
     Dates: start: 20220517, end: 20220628

REACTIONS (24)
  - Multiple organ dysfunction syndrome [Fatal]
  - Thrombocytopenia [Not Recovered/Not Resolved]
  - Liver disorder [Unknown]
  - Anaemia [Not Recovered/Not Resolved]
  - Blood creatinine increased [Unknown]
  - Haemoglobin decreased [Unknown]
  - Liver function test increased [Unknown]
  - Myelofibrosis [Unknown]
  - Malignant neoplasm progression [Unknown]
  - Acute kidney injury [Not Recovered/Not Resolved]
  - Asthenia [Not Recovered/Not Resolved]
  - Hypophagia [Not Recovered/Not Resolved]
  - Pneumonia [Not Recovered/Not Resolved]
  - Fatigue [Unknown]
  - Eating disorder [Unknown]
  - Diastolic dysfunction [Unknown]
  - Left ventricular end-diastolic pressure increased [Unknown]
  - Aortic valve sclerosis [Unknown]
  - Inferior vena cava dilatation [Unknown]
  - Lung opacity [Unknown]
  - Splenomegaly [Unknown]
  - Heart rate increased [Unknown]
  - Constipation [Unknown]
  - Disease progression [Unknown]

NARRATIVE: CASE EVENT DATE: 20220715
